FAERS Safety Report 7088551-5 (Version None)
Quarter: 2010Q4

REPORT INFORMATION
  Report Type: 
  Country: None (occurrence: None)
  Receive Date: 20101108
  Receipt Date: 20101104
  Transmission Date: 20110411
  Serious: Yes (Death, Hospitalization)
  Sender: FDA-Public Use
  Company Number: BG-ASTRAZENECA-2010SE52291

PATIENT
  Age: 86 Year
  Sex: Female

DRUGS (1)
  1. CRESTOR [Suspect]
     Indication: ANGINA UNSTABLE
     Route: 048
     Dates: start: 20101019, end: 20101023

REACTIONS (1)
  - RENAL FAILURE ACUTE [None]
